FAERS Safety Report 14992604 (Version 1)
Quarter: 2018Q2

REPORT INFORMATION
  Report Type: Report from Study
  Country: CA (occurrence: CA)
  Receive Date: 20180609
  Receipt Date: 20180609
  Transmission Date: 20180711
  Serious: Yes (Death, Other)
  Sender: FDA-Public Use
  Company Number: CA-AMGEN-CANSL2018078049

PATIENT

DRUGS (2)
  1. DEXAMETHASONE. [Concomitant]
     Active Substance: DEXAMETHASONE
     Indication: PLASMA CELL MYELOMA
     Dosage: UNK
     Dates: start: 20171106
  2. KYPROLIS [Suspect]
     Active Substance: CARFILZOMIB
     Indication: PLASMA CELL MYELOMA
     Dosage: 56 MG/M2, 2 TIMES/WK
     Route: 065
     Dates: start: 20171106

REACTIONS (1)
  - Death [Fatal]
